FAERS Safety Report 23881514 (Version 2)
Quarter: 2024Q3

REPORT INFORMATION
  Report Type: Spontaneous
  Country: US (occurrence: US)
  Receive Date: 20240521
  Receipt Date: 20240723
  Transmission Date: 20241017
  Serious: No
  Sender: STEMLINE THERAPEUTICS
  Company Number: US-Stemline Therapeutics, Inc.-2024ST001377

PATIENT
  Age: 69 Year
  Sex: Female

DRUGS (1)
  1. ORSERDU [Suspect]
     Active Substance: ELACESTRANT
     Indication: Product used for unknown indication
     Route: 048
     Dates: start: 20240118

REACTIONS (9)
  - Liver disorder [Unknown]
  - Muscle spasms [Unknown]
  - Platelet count decreased [Unknown]
  - Yellow skin [Unknown]
  - Adverse drug reaction [Unknown]
  - Liver function test abnormal [Unknown]
  - Pruritus [Unknown]
  - Blood cholesterol increased [Unknown]
  - Blood triglycerides increased [Unknown]
